FAERS Safety Report 10240825 (Version 1)
Quarter: 2014Q2

REPORT INFORMATION
  Report Type: Spontaneous
  Country: US (occurrence: US)
  Receive Date: 20140617
  Receipt Date: 20140617
  Transmission Date: 20141212
  Serious: Yes (Other)
  Sender: FDA-Public Use
  Company Number: US-JNJCP-30000223990

PATIENT
  Age: 18 Year
  Sex: Male
  Weight: 82 kg

DRUGS (4)
  1. NEUTROGENA WET SKIN SUNSCREEN SPRAY SPF30 [Suspect]
     Indication: PROPHYLAXIS
     Dosage: APPLIED LIBERALLY FOUR TIMES IN THREE HOUR PERIOD FOR ONE DAY
     Route: 061
     Dates: start: 20140601, end: 20140601
  2. ALBUTEROL INHALER [Concomitant]
     Indication: ASTHMA
     Dosage: AS NEEDED
  3. BABY BAYER ASPIRIN - 81MG [Concomitant]
     Dosage: 81MG ONCE DAILY
  4. BENAZAPILL - 5MG [Concomitant]
     Indication: HYPERTENSION
     Dosage: 5MG ONCE DAILY

REACTIONS (5)
  - Burns first degree [Recovering/Resolving]
  - Dehydration [Unknown]
  - Drug ineffective [Unknown]
  - Musculoskeletal pain [None]
  - Back pain [None]
